FAERS Safety Report 5245899-4 (Version None)
Quarter: 2007Q1

REPORT INFORMATION
  Report Type: 
  Country: None (occurrence: None)
  Receive Date: 20070216
  Receipt Date: 20070206
  Transmission Date: 20070707
  Serious: Yes (Life-Threatening)
  Sender: FDA-Public Use
  Company Number: DISJP-07-0135

PATIENT
  Age: 39 Year

DRUGS (3)
  1. DIPRIVAN [Suspect]
     Indication: SEDATION
     Dosage: INTRAVENOUS
     Route: 042
  2. THIOPENTAL SODIUM [Concomitant]
  3. DORMICUM (NITRAZEPAM) [Concomitant]

REACTIONS (1)
  - ELECTROENCEPHALOGRAM ABNORMAL [None]
